FAERS Safety Report 19754891 (Version 1)
Quarter: 2021Q3

REPORT INFORMATION
  Report Type: Spontaneous
  Country: US (occurrence: US)
  Receive Date: 20210827
  Receipt Date: 20210827
  Transmission Date: 20211014
  Serious: No
  Sender: FDA-Public Use
  Company Number: US-BAYER-2021-198149

PATIENT

DRUGS (1)
  1. MIRALAX [Suspect]
     Active Substance: POLYETHYLENE GLYCOL 3350
     Indication: PAIN
     Dosage: UNK
     Route: 065
     Dates: start: 20210823

REACTIONS (2)
  - Product use in unapproved indication [None]
  - Abdominal discomfort [Unknown]

NARRATIVE: CASE EVENT DATE: 20210823
